FAERS Safety Report 10601728 (Version 2)
Quarter: 2015Q4

REPORT INFORMATION
  Report Type: Report from Study
  Country: BR (occurrence: BR)
  Receive Date: 20141124
  Receipt Date: 20151118
  Transmission Date: 20160304
  Serious: No
  Sender: FDA-Public Use
  Company Number: BR-ABBVIE-14K-020-1310933-00

PATIENT
  Sex: Female
  Weight: 50 kg

DRUGS (6)
  1. QLAIRA [Concomitant]
     Active Substance: DIENOGEST\ESTRADIOL VALERATE
     Indication: MENOPAUSE
     Route: 048
     Dates: start: 2009
  2. SOYBEAN (MAGISTRAL FORMULA) [Concomitant]
     Indication: HORMONE REPLACEMENT THERAPY
     Route: 048
  3. HUMIRA [Suspect]
     Active Substance: ADALIMUMAB
     Indication: RHEUMATOID ARTHRITIS
     Route: 058
     Dates: start: 20130510
  4. HUMIRA [Suspect]
     Active Substance: ADALIMUMAB
     Dosage: REINTRODUCED AFTER SURGERY
     Route: 058
     Dates: start: 2013
  5. ARAVA [Concomitant]
     Active Substance: LEFLUNOMIDE
     Indication: RHEUMATOID ARTHRITIS
     Route: 048
     Dates: start: 2009
  6. PHENERGAN [Concomitant]
     Active Substance: PROMETHAZINE HYDROCHLORIDE
     Indication: ARTHROPOD STING

REACTIONS (1)
  - Pain in extremity [Not Recovered/Not Resolved]

NARRATIVE: CASE EVENT DATE: 2013
